FAERS Safety Report 15258856 (Version 3)
Quarter: 2018Q3

REPORT INFORMATION
  Report Type: Report from Study
  Country: CN (occurrence: CN)
  Receive Date: 20180809
  Receipt Date: 20180906
  Transmission Date: 20181010
  Serious: Yes (Hospitalization, Other)
  Sender: FDA-Public Use
  Company Number: CN-ASTRAZENECA-2018SE93842

PATIENT
  Sex: Female

DRUGS (2)
  1. BYETTA [Suspect]
     Active Substance: EXENATIDE
     Indication: DIABETES MELLITUS
     Route: 058
     Dates: end: 20180628
  2. BYETTA [Suspect]
     Active Substance: EXENATIDE
     Indication: DIABETES MELLITUS
     Route: 058

REACTIONS (10)
  - Hyperhidrosis [Unknown]
  - Decreased appetite [Recovering/Resolving]
  - Diplegia [Recovering/Resolving]
  - Somnolence [Recovering/Resolving]
  - Coma [Recovering/Resolving]
  - Asthenia [Unknown]
  - Hypersensitivity [Unknown]
  - Vomiting [Recovering/Resolving]
  - Vertigo [Unknown]
  - Rash erythematous [Unknown]
